FAERS Safety Report 17272677 (Version 3)
Quarter: 2022Q2

REPORT INFORMATION
  Report Type: Spontaneous
  Country: US (occurrence: US)
  Receive Date: 20200115
  Receipt Date: 20220502
  Transmission Date: 20220721
  Serious: No
  Sender: FDA-Public Use
  Company Number: US-PFIZER INC-2018341205

PATIENT
  Age: 63 Year
  Sex: Female

DRUGS (3)
  1. LYRICA [Suspect]
     Active Substance: PREGABALIN
     Indication: Pain
     Dosage: 100 MG, 3X/DAY
  2. LYRICA [Suspect]
     Active Substance: PREGABALIN
     Indication: Post laminectomy syndrome
     Dosage: 100 MG, 2X/DAY
  3. LYRICA [Suspect]
     Active Substance: PREGABALIN
     Indication: Lumbar radiculopathy
     Dosage: 100 MG, 3X/DAY
     Route: 048

REACTIONS (4)
  - Intentional product use issue [Unknown]
  - Off label use [Unknown]
  - Illness [Unknown]
  - Confusional state [Unknown]
